FAERS Safety Report 8173410 (Version 8)
Quarter: 2012Q4

REPORT INFORMATION
  Report Type: 
  Country: US (occurrence: US)
  Receive Date: 20111007
  Receipt Date: 20120829
  Transmission Date: 20130627
  Serious: Yes (Hospitalization, Other)
  Sender: FDA-Public Use
  Company Number: US-009507513-1110USA00792

PATIENT

DRUGS (4)
  1. FOSAMAX [Suspect]
     Indication: OSTEOPOROSIS
     Dosage: 70 mg, QW
     Route: 048
     Dates: start: 20010720, end: 20050705
  2. FOSAMAX [Suspect]
     Dosage: 70 mg, qd
     Route: 048
     Dates: end: 201002
  3. FOSAMAX [Suspect]
     Dosage: 70 mg, QW
     Route: 048
     Dates: start: 20100214
  4. FOSAMAX PLUS D [Suspect]
     Indication: OSTEOPOROSIS
     Dosage: 70 mg/2800, qw
     Route: 048
     Dates: start: 20051010, end: 20101025

REACTIONS (64)
  - Femur fracture [Recovered/Resolved]
  - Tibia fracture [Recovered/Resolved]
  - Ankle fracture [Unknown]
  - Gallbladder disorder [Unknown]
  - Cerebral infarction [Recovered/Resolved]
  - Breast cancer [Unknown]
  - Renal failure chronic [Not Recovered/Not Resolved]
  - Cerebral artery occlusion [Recovering/Resolving]
  - Fibula fracture [Unknown]
  - Cystocele [Unknown]
  - Internal fixation of fracture [Unknown]
  - Transfusion [Unknown]
  - Anaemia postoperative [Unknown]
  - Colporrhaphy [Unknown]
  - Open reduction of fracture [Unknown]
  - Femur fracture [Recovering/Resolving]
  - Cardiac failure congestive [Unknown]
  - Fracture delayed union [Unknown]
  - Vitamin D deficiency [Unknown]
  - Cardiac disorder [Unknown]
  - Hand fracture [Unknown]
  - Hypercholesterolaemia [Unknown]
  - Tendonitis [Unknown]
  - Fall [Unknown]
  - Compression fracture [Not Recovered/Not Resolved]
  - Intraneural cyst [Not Recovered/Not Resolved]
  - Intervertebral disc degeneration [Not Recovered/Not Resolved]
  - Spinal column stenosis [Not Recovered/Not Resolved]
  - Tendonitis [Unknown]
  - Arthritis [Not Recovered/Not Resolved]
  - Rotator cuff syndrome [Not Recovered/Not Resolved]
  - Osteoarthritis [Not Recovered/Not Resolved]
  - Thoracic vertebral fracture [Unknown]
  - Device failure [Unknown]
  - Breast mass [Unknown]
  - Hyperkalaemia [Unknown]
  - Hypothyroidism [Unknown]
  - Bone disorder [Unknown]
  - Breast lump removal [Unknown]
  - Osteoporosis [Unknown]
  - Kyphosis [Unknown]
  - Hypocalciuria [Unknown]
  - Back disorder [Unknown]
  - Blood calcium decreased [Unknown]
  - Pulmonary congestion [Unknown]
  - Cardiomegaly [Not Recovered/Not Resolved]
  - Emphysema [Unknown]
  - Medical device removal [Unknown]
  - Medical device discomfort [Unknown]
  - Sinusitis [Unknown]
  - Hypertension [Unknown]
  - Biopsy breast [Unknown]
  - Breast calcifications [Unknown]
  - Arteriosclerosis [Unknown]
  - Metaplasia [Unknown]
  - Breast fibrosis [Unknown]
  - Mammary duct ectasia [Unknown]
  - Breast hyperplasia [Unknown]
  - Intervertebral disc degeneration [Unknown]
  - Scoliosis [Unknown]
  - Inappropriate schedule of drug administration [Recovered/Resolved]
  - Overdose [Recovered/Resolved]
  - Nausea [Unknown]
  - Dizziness [Unknown]
